FAERS Safety Report 5369163-8 (Version None)
Quarter: 2007Q2

REPORT INFORMATION
  Report Type: 
  Country: None (occurrence: None)
  Receive Date: 20070625
  Receipt Date: 20070213
  Transmission Date: 20071010
  Serious: Yes (Other)
  Sender: FDA-Public Use
  Company Number: US-ASTRAZENECA-2007UW01925

PATIENT
  Age: 69 Year
  Sex: Male

DRUGS (8)
  1. CRESTOR [Suspect]
     Route: 048
     Dates: start: 20031201, end: 20061109
  2. BENICAR [Suspect]
     Dates: start: 20060801, end: 20061109
  3. PLAVIX [Concomitant]
  4. ZETIA [Concomitant]
     Dates: start: 20050101
  5. TOPROL-XL [Concomitant]
     Route: 048
  6. ASPIRIN [Concomitant]
  7. FISH OIL [Concomitant]
  8. LOTREL [Concomitant]
     Indication: HYPERTENSION
     Dates: end: 20060801

REACTIONS (2)
  - DYSURIA [None]
  - RENAL FAILURE ACUTE [None]
